FAERS Safety Report 21126392 (Version 5)
Quarter: 2024Q1

REPORT INFORMATION
  Report Type: Report from Study
  Country: CO (occurrence: CO)
  Receive Date: 20220725
  Receipt Date: 20240318
  Transmission Date: 20240410
  Serious: Yes (Other)
  Sender: FDA-Public Use
  Company Number: CO-NOVARTISPH-NVSC2021CO167945

PATIENT
  Sex: Female
  Weight: 25 kg

DRUGS (7)
  1. ELTROMBOPAG OLAMINE [Suspect]
     Active Substance: ELTROMBOPAG OLAMINE
     Indication: Immune thrombocytopenia
     Dosage: 25 MG, QD
     Route: 048
  2. ELTROMBOPAG OLAMINE [Suspect]
     Active Substance: ELTROMBOPAG OLAMINE
     Dosage: 37.5 MG, QD (ONE TABLET OF 25 MG AND THE NEXT DAY 2 TABLETS OF 25 MG)
     Route: 048
  3. ELTROMBOPAG OLAMINE [Suspect]
     Active Substance: ELTROMBOPAG OLAMINE
     Dosage: 50 MG, QD
     Route: 048
  4. ELTROMBOPAG OLAMINE [Suspect]
     Active Substance: ELTROMBOPAG OLAMINE
     Dosage: 25 MG, QD
     Route: 048
     Dates: start: 20210719
  5. ELTROMBOPAG OLAMINE [Suspect]
     Active Substance: ELTROMBOPAG OLAMINE
     Dosage: 50 MG, QD
     Route: 048
  6. ELTROMBOPAG OLAMINE [Suspect]
     Active Substance: ELTROMBOPAG OLAMINE
     Dosage: UNK
     Route: 048
  7. ELTROMBOPAG OLAMINE [Suspect]
     Active Substance: ELTROMBOPAG OLAMINE
     Dosage: 50 MG, QD
     Route: 048
     Dates: start: 20210719

REACTIONS (12)
  - Platelet count decreased [Unknown]
  - Disease recurrence [Unknown]
  - Haemorrhage [Unknown]
  - Petechiae [Unknown]
  - Influenza [Unknown]
  - Eye colour change [Unknown]
  - Pallor [Unknown]
  - General physical health deterioration [Unknown]
  - Yellow skin [Unknown]
  - Abdominal pain [Unknown]
  - Product supply issue [Unknown]
  - Platelet count increased [Unknown]
